FAERS Safety Report 11146989 (Version 3)
Quarter: 2015Q4

REPORT INFORMATION
  Report Type: Report from Study
  Country: JP (occurrence: JP)
  Receive Date: 20150528
  Receipt Date: 20151125
  Transmission Date: 20160304
  Serious: Yes (Hospitalization)
  Sender: FDA-Public Use
  Company Number: JP-ABBVIE-15P-087-1394209-00

PATIENT
  Age: 31 Year
  Sex: Male
  Weight: 94 kg

DRUGS (25)
  1. HUMIRA [Suspect]
     Active Substance: ADALIMUMAB
     Route: 058
     Dates: start: 20150605
  2. MYDRIN-P [Concomitant]
     Active Substance: PHENYLEPHRINE HYDROCHLORIDE\TROPICAMIDE
     Indication: FUNDOSCOPY
     Route: 061
     Dates: start: 20130118
  3. CRAVIT [Concomitant]
     Active Substance: LEVOFLOXACIN
     Route: 061
     Dates: start: 20141218
  4. PREDONISOLONE [Concomitant]
     Route: 048
     Dates: start: 20141120
  5. DIAGNOGREEN [Concomitant]
     Indication: PRODUCT USED FOR UNKNOWN INDICATION
     Route: 042
     Dates: start: 20121214
  6. RINBETA PF [Concomitant]
     Active Substance: BETAMETHASONE SODIUM PHOSPHATE
     Route: 061
     Dates: start: 20141211, end: 20150217
  7. NEORAL [Concomitant]
     Active Substance: CYCLOSPORINE
     Indication: UVEITIS
     Route: 048
     Dates: start: 20140807, end: 20140820
  8. CRAVIT [Concomitant]
     Active Substance: LEVOFLOXACIN
     Indication: POST PROCEDURAL INFECTION
     Route: 048
     Dates: start: 20140823, end: 20140827
  9. PREDONISOLONE [Concomitant]
     Indication: UVEITIS
     Route: 048
     Dates: start: 20140417, end: 20140618
  10. COSOPT [Concomitant]
     Active Substance: DORZOLAMIDE HYDROCHLORIDE\TIMOLOL MALEATE
     Indication: OCULAR HYPERTENSION
     Dosage: OD
     Route: 061
     Dates: start: 20150227
  11. HUMIRA [Suspect]
     Active Substance: ADALIMUMAB
     Indication: UVEITIS
     Route: 058
     Dates: start: 20131017, end: 20150423
  12. RINBETA PF [Concomitant]
     Active Substance: BETAMETHASONE SODIUM PHOSPHATE
     Indication: POST PROCEDURAL INFLAMMATION
     Route: 061
     Dates: start: 20140903, end: 20141209
  13. PREDONISOLONE [Concomitant]
     Route: 048
     Dates: start: 20140904, end: 20140917
  14. SANDOL [Concomitant]
     Indication: PROPHYLAXIS
  15. RINBETA PF [Concomitant]
     Active Substance: BETAMETHASONE SODIUM PHOSPHATE
     Dosage: (OD 4XD)(OU 6XD)
     Route: 061
     Dates: start: 20150218
  16. PREDONISOLONE [Concomitant]
     Route: 048
     Dates: start: 20141029, end: 20141119
  17. SANDOL [Concomitant]
     Indication: IRIS ADHESIONS
     Route: 061
     Dates: start: 20150218
  18. FLUORESCITE [Concomitant]
     Active Substance: FLUORESCEIN SODIUM
     Indication: PRODUCT USED FOR UNKNOWN INDICATION
     Route: 042
     Dates: start: 20121214
  19. PREDONISOLONE [Concomitant]
     Route: 048
     Dates: start: 20140918, end: 20141015
  20. MYDRIN-P [Concomitant]
     Active Substance: PHENYLEPHRINE HYDROCHLORIDE\TROPICAMIDE
     Indication: IRIS ADHESIONS
  21. RINBETA PF [Concomitant]
     Active Substance: BETAMETHASONE SODIUM PHOSPHATE
     Indication: UVEITIS
     Route: 061
     Dates: start: 20140807, end: 20140902
  22. CRAVIT [Concomitant]
     Active Substance: LEVOFLOXACIN
     Indication: PROPHYLAXIS
     Route: 061
     Dates: start: 20141211
  23. RINBETA PF [Concomitant]
     Active Substance: BETAMETHASONE SODIUM PHOSPHATE
     Indication: PROPHYLAXIS
     Route: 061
     Dates: start: 20141211, end: 20150217
  24. NEORAL [Concomitant]
     Active Substance: CYCLOSPORINE
     Route: 048
     Dates: start: 20140821
  25. MYDRIN-P [Concomitant]
     Active Substance: PHENYLEPHRINE HYDROCHLORIDE\TROPICAMIDE
     Indication: PROPHYLAXIS
     Route: 061
     Dates: start: 20131009, end: 20131211

REACTIONS (1)
  - Cataract [Recovered/Resolved]

NARRATIVE: CASE EVENT DATE: 20150306
